FAERS Safety Report 16008813 (Version 7)
Quarter: 2019Q2

REPORT INFORMATION
  Report Type: Spontaneous
  Country: PR (occurrence: PR)
  Receive Date: 20190225
  Receipt Date: 20190614
  Transmission Date: 20190711
  Serious: Yes (Other)
  Sender: FDA-Public Use
  Company Number: PR-COLGATE PALMOLIVE COMPANY-20190200497

PATIENT
  Sex: Female

DRUGS (1)
  1. COLGATE MAX FRESH CLEAN MINT [Suspect]
     Active Substance: SODIUM FLUORIDE
     Dosage: SHE BRUSHES FOR 5-6 MINUTES, BID
     Dates: start: 2018, end: 201902

REACTIONS (15)
  - Coating in mouth [Not Recovered/Not Resolved]
  - Tooth discolouration [Not Recovered/Not Resolved]
  - Oral discomfort [Not Recovered/Not Resolved]
  - Oral pain [Not Recovered/Not Resolved]
  - Dizziness [Recovering/Resolving]
  - Aptyalism [Not Recovered/Not Resolved]
  - Hypersensitivity [Not Recovered/Not Resolved]
  - Tongue discomfort [Recovering/Resolving]
  - Nausea [Recovering/Resolving]
  - Tonsillar disorder [Not Recovered/Not Resolved]
  - Emotional distress [Not Recovered/Not Resolved]
  - Dyspnoea [Recovering/Resolving]
  - Taste disorder [Not Recovered/Not Resolved]
  - Glossodynia [Recovering/Resolving]
  - Speech disorder [Recovering/Resolving]

NARRATIVE: CASE EVENT DATE: 2018
